FAERS Safety Report 7869367-6 (Version None)
Quarter: 2011Q4

REPORT INFORMATION
  Report Type: 
  Country: None (occurrence: None)
  Receive Date: 20111021
  Receipt Date: 20111014
  Transmission Date: 20120403
  Serious: Yes (Hospitalization, Disabling, Other)
  Sender: FDA-Public Use
  Company Number: 2009SP017429

PATIENT
  Age: 48 Year
  Sex: Female
  Weight: 72.5755 kg

DRUGS (4)
  1. IBUPROFEN (ADVIL) [Concomitant]
  2. VIOXX [Concomitant]
  3. NUVARING [Suspect]
     Indication: MENSTRUAL CYCLE MANAGEMENT
     Dosage: 1 DF, QM, VAG
     Route: 067
     Dates: start: 20050301, end: 20050701
  4. IMODIUM [Concomitant]

REACTIONS (35)
  - PAIN [None]
  - NEPHROLITHIASIS [None]
  - SCIATICA [None]
  - CALCULUS URETERIC [None]
  - ARTERIOSCLEROSIS [None]
  - INTERVERTEBRAL DISC DEGENERATION [None]
  - BREAST CYST [None]
  - INTERNATIONAL NORMALISED RATIO INCREASED [None]
  - UTERINE LEIOMYOMA [None]
  - PARAESTHESIA [None]
  - HYPOAESTHESIA [None]
  - EPISTAXIS [None]
  - HYDRONEPHROSIS [None]
  - INJECTION SITE HAEMATOMA [None]
  - PERIPHERAL NERVE INJURY [None]
  - HYPERCOAGULATION [None]
  - WEIGHT INCREASED [None]
  - LEG AMPUTATION [None]
  - ARTERIAL THROMBOSIS [None]
  - HEADACHE [None]
  - MENORRHAGIA [None]
  - VAGINAL HAEMORRHAGE [None]
  - COMPARTMENT SYNDROME [None]
  - EAR PAIN [None]
  - INTERVERTEBRAL DISC PROTRUSION [None]
  - DEPRESSION [None]
  - OCULAR HYPERAEMIA [None]
  - BLADDER OPERATION [None]
  - URINARY TRACT INFECTION [None]
  - INGROWING NAIL [None]
  - ONYCHOMYCOSIS [None]
  - METATARSALGIA [None]
  - OVARIAN CYST [None]
  - ROAD TRAFFIC ACCIDENT [None]
  - TENDONITIS [None]
